FAERS Safety Report 6119187-8 (Version None)
Quarter: 2009Q1

REPORT INFORMATION
  Report Type: 
  Country: None (occurrence: None)
  Receive Date: 20090316
  Receipt Date: 20090305
  Transmission Date: 20090719
  Serious: Yes (Hospitalization)
  Sender: FDA-Public Use
  Company Number: FR-PFIZER INC-2009180083

PATIENT

DRUGS (16)
  1. TAHOR [Suspect]
     Indication: HYPERCHOLESTEROLAEMIA
     Route: 048
     Dates: end: 20080529
  2. VANCOMYCIN HCL [Suspect]
     Indication: ENDOCARDITIS
     Route: 042
     Dates: start: 20080502, end: 20080529
  3. BISOPROLOL [Suspect]
     Indication: CARDIAC FAILURE
     Route: 048
     Dates: start: 20080506, end: 20080529
  4. RIFADIN [Suspect]
     Indication: ENDOCARDITIS
     Route: 048
     Dates: start: 20080515, end: 20080527
  5. TRIATEC [Suspect]
     Indication: CARDIAC FAILURE
     Route: 048
     Dates: start: 20080517, end: 20080529
  6. ATARAX [Suspect]
     Indication: ANXIETY
     Route: 048
     Dates: start: 20080310, end: 20080529
  7. LEXOMIL [Suspect]
     Indication: ANXIETY
     Dosage: 0.5 DF, 2X/DAY
     Route: 048
     Dates: start: 20080517, end: 20080529
  8. INIPOMP [Suspect]
     Dosage: 1 DF, 1X/DAY
     Route: 048
     Dates: start: 20080515, end: 20080529
  9. GENTAMICINE [Concomitant]
     Dates: start: 20080502
  10. KARDEGIC [Concomitant]
     Dates: start: 20080515
  11. LASIX [Concomitant]
     Dates: start: 20080515
  12. SINEMET [Concomitant]
  13. STALEVO 100 [Concomitant]
  14. LOVENOX [Concomitant]
  15. DIFFU K [Concomitant]
  16. ALL OTHER THERAPEUTIC PRODUCTS [Suspect]

REACTIONS (1)
  - DRUG RASH WITH EOSINOPHILIA AND SYSTEMIC SYMPTOMS [None]
